FAERS Safety Report 12175235 (Version 1)
Quarter: 2016Q1

REPORT INFORMATION
  Report Type: Spontaneous
  Country: US (occurrence: US)
  Receive Date: 20160314
  Receipt Date: 20160314
  Transmission Date: 20160526
  Serious: Yes (Other)
  Sender: FDA-Public Use
  Company Number: US-VIFOR (INTERNATIONAL) INC.-VIT-2016-01225

PATIENT
  Age: 80 Year
  Sex: Female
  Weight: 84 kg

DRUGS (1)
  1. MIRCERA [Suspect]
     Active Substance: METHOXY POLYETHYLENE GLYCOL-EPOETIN BETA
     Indication: PRODUCT USED FOR UNKNOWN INDICATION
     Dates: start: 20160128

REACTIONS (4)
  - Asthenia [Unknown]
  - Nausea [Unknown]
  - Abasia [Unknown]
  - Vomiting [Unknown]

NARRATIVE: CASE EVENT DATE: 20160128
